FAERS Safety Report 23274690 (Version 1)
Quarter: 2023Q4

REPORT INFORMATION
  Report Type: Spontaneous
  Country: JP (occurrence: JP)
  Receive Date: 20231208
  Receipt Date: 20231208
  Transmission Date: 20240109
  Serious: Yes (Death, Hospitalization, Other)
  Sender: FDA-Public Use
  Company Number: JP-MSD-M2023-42152

PATIENT
  Age: 75 Year
  Sex: Male
  Weight: 50 kg

DRUGS (3)
  1. KEYTRUDA [Suspect]
     Active Substance: PEMBROLIZUMAB
     Indication: Oesophageal carcinoma
     Dosage: 200 MILLIGRAM, Q3W
     Route: 041
     Dates: start: 20230727, end: 20230912
  2. CISPLATIN [Concomitant]
     Active Substance: CISPLATIN
     Indication: Oesophageal carcinoma
     Dosage: 80 MILLIGRAM/SQ. METER, Q3W
     Route: 065
     Dates: start: 20230727, end: 20230912
  3. FLUOROURACIL [Concomitant]
     Active Substance: FLUOROURACIL
     Indication: Oesophageal carcinoma
     Dosage: 4000 MILLIGRAM/SQ. METER, Q3W
     Route: 065
     Dates: start: 20230727, end: 20230912

REACTIONS (8)
  - Cytokine release syndrome [Fatal]
  - Pneumonia aspiration [Unknown]
  - Oesophageal perforation [Unknown]
  - Nephritis [Unknown]
  - Pneumonia [Unknown]
  - Oesophageal mass [Unknown]
  - Hepatic cyst [Unknown]
  - Cholelithiasis [Unknown]

NARRATIVE: CASE EVENT DATE: 20231002
